FAERS Safety Report 5318155-3 (Version None)
Quarter: 2007Q2

REPORT INFORMATION
  Report Type: 
  Country: None (occurrence: None)
  Receive Date: 20070507
  Receipt Date: 20070424
  Transmission Date: 20071010
  Serious: Yes (Hospitalization)
  Sender: FDA-Public Use
  Company Number: JP-ROCHE-494829

PATIENT
  Age: 48 Year
  Sex: Female

DRUGS (3)
  1. TAMIFLU [Suspect]
     Route: 048
     Dates: start: 20070305, end: 20070309
  2. BANAN [Concomitant]
     Route: 048
  3. BRICANYL [Concomitant]

REACTIONS (1)
  - LIVER DISORDER [None]
